FAERS Safety Report 5514923-3 (Version None)
Quarter: 2007Q4

REPORT INFORMATION
  Report Type: 
  Country: None (occurrence: None)
  Receive Date: 20071113
  Receipt Date: 20061005
  Transmission Date: 20080405
  Serious: No
  Sender: FDA-Public Use
  Company Number: A0622652A

PATIENT
  Age: 84 Year
  Sex: Female

DRUGS (3)
  1. COREG [Suspect]
     Indication: DRUG USE FOR UNKNOWN INDICATION
     Dosage: 25MG THREE TIMES PER DAY
     Route: 048
  2. DIABETA [Concomitant]
  3. OTHER MEDICATIONS [Concomitant]

REACTIONS (3)
  - BONE PAIN [None]
  - CHEST PAIN [None]
  - MUSCULOSKELETAL PAIN [None]
